FAERS Safety Report 21099027 (Version 1)
Quarter: 2022Q3

REPORT INFORMATION
  Report Type: Spontaneous
  Country: US (occurrence: None)
  Receive Date: 20220718
  Receipt Date: 20220718
  Transmission Date: 20221027
  Serious: Yes (Hospitalization)
  Sender: FDA-Public Use
  Company Number: None

PATIENT
  Age: 48 Year
  Sex: Female
  Weight: 93.1 kg

DRUGS (1)
  1. BELATACEPT [Suspect]
     Active Substance: BELATACEPT
     Indication: Renal transplant
     Dosage: FREQUENCY : AS NEEDED;?
     Route: 042
     Dates: start: 20220120

REACTIONS (8)
  - Dyspnoea [None]
  - SARS-CoV-2 test positive [None]
  - Myalgia [None]
  - Asthenia [None]
  - Nausea [None]
  - Vomiting [None]
  - Abdominal pain [None]
  - Oropharyngeal pain [None]

NARRATIVE: CASE EVENT DATE: 20220717
